FAERS Safety Report 17082373 (Version 4)
Quarter: 2020Q1

REPORT INFORMATION
  Report Type: Report from Study
  Country: US (occurrence: US)
  Receive Date: 20191127
  Receipt Date: 20200123
  Transmission Date: 20200409
  Serious: Yes (Hospitalization, Other)
  Sender: FDA-Public Use
  Company Number: US-SA-2018SA227530

PATIENT
  Age: 53 Year
  Sex: Male

DRUGS (2)
  1. ALEMTUZUMAB [Suspect]
     Active Substance: ALEMTUZUMAB
     Indication: MULTIPLE SCLEROSIS
     Dosage: 12 MG, QD
     Route: 041
     Dates: start: 20170830, end: 20170901
  2. ALEMTUZUMAB [Suspect]
     Active Substance: ALEMTUZUMAB
     Dosage: 12 MG, QD
     Route: 041
     Dates: start: 20160613, end: 20160617

REACTIONS (11)
  - Furuncle [Recovered/Resolved]
  - Asthenia [Recovering/Resolving]
  - Mobility decreased [Recovering/Resolving]
  - Multiple sclerosis relapse [Unknown]
  - CD4 lymphocytes decreased [Not Recovered/Not Resolved]
  - Temperature intolerance [Not Recovered/Not Resolved]
  - Fall [Unknown]
  - Bladder pain [Recovered/Resolved]
  - Sepsis [Recovered/Resolved]
  - Dysgraphia [Not Recovered/Not Resolved]
  - Cystitis [Recovered/Resolved]

NARRATIVE: CASE EVENT DATE: 201711
